FAERS Safety Report 9128322 (Version 1)
Quarter: 2013Q1

REPORT INFORMATION
  Report Type: Report from Study
  Country: US (occurrence: US)
  Receive Date: 20130125
  Receipt Date: 20130125
  Transmission Date: 20140127
  Serious: Yes (Hospitalization)
  Sender: FDA-Public Use
  Company Number: US-BAXTER-2013BAX002907

PATIENT
  Age: 29 Year
  Sex: Female

DRUGS (17)
  1. CYCLOPHOSPHAMIDE FOR INJECTION, USP [Suspect]
     Indication: ACUTE LYMPHOCYTIC LEUKAEMIA
     Route: 042
     Dates: start: 20120712
  2. CYCLOPHOSPHAMIDE FOR INJECTION, USP [Suspect]
     Route: 042
     Dates: start: 20120714
  3. MESNA [Suspect]
     Indication: ACUTE LYMPHOCYTIC LEUKAEMIA
     Route: 042
     Dates: start: 20120712
  4. MESNA [Suspect]
     Route: 042
     Dates: start: 20120714
  5. DASATINIB [Suspect]
     Indication: ACUTE LYMPHOCYTIC LEUKAEMIA
     Route: 048
     Dates: start: 20120712
  6. DASATINIB [Suspect]
     Route: 048
     Dates: start: 20120719
  7. METHOTREXATE [Suspect]
     Indication: ACUTE LYMPHOCYTIC LEUKAEMIA
     Route: 042
     Dates: start: 20120712
  8. DOXORUBICIN [Suspect]
     Indication: ACUTE LYMPHOCYTIC LEUKAEMIA
     Route: 042
     Dates: start: 20120712
  9. DOXORUBICIN [Suspect]
     Route: 042
     Dates: start: 20120715
  10. GRANULOCYTE COLONY STIMULATING FACTOR [Suspect]
     Indication: ACUTE LYMPHOCYTIC LEUKAEMIA
     Route: 058
     Dates: start: 20120712
  11. GRANULOCYTE COLONY STIMULATING FACTOR [Suspect]
     Route: 058
     Dates: start: 20120729
  12. VINCRISTINE SULFATE [Suspect]
     Indication: ACUTE LYMPHOCYTIC LEUKAEMIA
     Route: 042
     Dates: start: 20120712
  13. VINCRISTINE SULFATE [Suspect]
     Route: 042
     Dates: start: 20120722
  14. DEXAMETHASONE [Suspect]
     Indication: ACUTE LYMPHOCYTIC LEUKAEMIA
     Route: 065
     Dates: start: 20120712
  15. DEXAMETHASONE [Suspect]
     Route: 065
     Dates: start: 20120725
  16. CYTARABINE [Suspect]
     Indication: ACUTE LYMPHOCYTIC LEUKAEMIA
     Route: 042
  17. CYTARABINE [Suspect]
     Route: 065
     Dates: start: 20120725

REACTIONS (5)
  - Febrile neutropenia [Recovered/Resolved]
  - Hypertension [None]
  - Thrombocytopenia [None]
  - Haematuria [None]
  - Bacteraemia [None]
